FAERS Safety Report 7394795-5 (Version None)
Quarter: 2011Q2

REPORT INFORMATION
  Report Type: 
  Country: None (occurrence: None)
  Receive Date: 20110405
  Receipt Date: 20110323
  Transmission Date: 20111010
  Serious: Yes (Hospitalization)
  Sender: FDA-Public Use
  Company Number: US-ELI_LILLY_AND_COMPANY-US201103008863

PATIENT
  Sex: Female

DRUGS (8)
  1. FORTEO [Suspect]
     Indication: OSTEOPOROSIS
     Dosage: 20 UG, QD
     Dates: start: 20101101
  2. COMBIVENT [Concomitant]
  3. LORTAB [Concomitant]
  4. FUROSEMIDE [Concomitant]
  5. METOPROLOL TARTRATE [Concomitant]
  6. VERAPAMIL [Concomitant]
  7. XANAX [Concomitant]
  8. ADVAIR DISKUS 100/50 [Concomitant]

REACTIONS (8)
  - DEPRESSION [None]
  - ASTHENIA [None]
  - DYSPNOEA [None]
  - NASAL CONGESTION [None]
  - DYSSTASIA [None]
  - VITAMIN B12 DECREASED [None]
  - FATIGUE [None]
  - BRONCHITIS CHRONIC [None]
